FAERS Safety Report 24276486 (Version 2)
Quarter: 2024Q3

REPORT INFORMATION
  Report Type: Spontaneous
  Country: ES (occurrence: ES)
  Receive Date: 20240903
  Receipt Date: 20240906
  Transmission Date: 20241016
  Serious: Yes (Other)
  Sender: JOHNSON AND JOHNSON
  Company Number: ES-JNJFOC-20240876045

PATIENT
  Age: 39 Year
  Sex: Female

DRUGS (7)
  1. LOPERAMIDE HYDROCHLORIDE [Suspect]
     Active Substance: LOPERAMIDE HYDROCHLORIDE
     Indication: Diarrhoea
     Route: 065
  2. LOPERAMIDE HYDROCHLORIDE [Suspect]
     Active Substance: LOPERAMIDE HYDROCHLORIDE
     Route: 065
  3. ABEMACICLIB [Suspect]
     Active Substance: ABEMACICLIB
     Indication: Breast cancer
     Route: 048
     Dates: start: 20240617, end: 20240802
  4. LETROZOLE [Suspect]
     Active Substance: LETROZOLE
     Indication: Product used for unknown indication
     Route: 065
  5. PROBIOTICS NOS [Concomitant]
     Active Substance: PROBIOTICS NOS
     Indication: Product used for unknown indication
     Route: 065
  6. SODIUM CHLORIDE [Concomitant]
     Active Substance: SODIUM CHLORIDE
     Indication: Product used for unknown indication
     Route: 065
  7. PROBIOTICS NOS [Concomitant]
     Active Substance: PROBIOTICS NOS
     Indication: Product used for unknown indication
     Route: 065

REACTIONS (22)
  - Hyperthyroidism [Recovering/Resolving]
  - Migraine [Recovering/Resolving]
  - Diarrhoea [Recovered/Resolved]
  - Pyrexia [Recovering/Resolving]
  - Feeling abnormal [Recovering/Resolving]
  - Feeling cold [Recovering/Resolving]
  - Asthenia [Recovered/Resolved]
  - Dysuria [Recovering/Resolving]
  - Frequent bowel movements [Unknown]
  - Urinary tract infection [Recovering/Resolving]
  - Malaise [Recovered/Resolved]
  - Chills [Recovering/Resolving]
  - Hunger [Recovering/Resolving]
  - Dysbiosis [Recovering/Resolving]
  - Abdominal pain [Recovering/Resolving]
  - Flatulence [Recovering/Resolving]
  - Nausea [Recovering/Resolving]
  - Fatigue [Recovering/Resolving]
  - Rash [Recovering/Resolving]
  - Weight decreased [Recovering/Resolving]
  - Vomiting [Recovered/Resolved]
  - Mental disorder [Recovered/Resolved]

NARRATIVE: CASE EVENT DATE: 20240601
